FAERS Safety Report 6902323 (Version 3)
Quarter: 2014Q3

REPORT INFORMATION
  Report Type: Report from Study
  Country: JP (occurrence: JP)
  Receive Date: 20090205
  Receipt Date: 20140813
  Transmission Date: 20150326
  Serious: Yes (Hospitalization, Other)
  Sender: FDA-Public Use
  Company Number: JP-BRISTOL-MYERS SQUIBB COMPANY-14445084

PATIENT
  Age: 58 Year
  Sex: Male

DRUGS (4)
  1. TRUVADA [Suspect]
     Active Substance: EMTRICITABINE\TENOFOVIR DISOPROXIL FUMARATE
     Indication: HIV INFECTION
     Dosage: 1 DOSAGE FORM = 1 TAB
     Route: 048
     Dates: start: 20060408
  2. PREDNISOLONE. [Suspect]
     Active Substance: PREDNISOLONE
     Indication: HIV INFECTION
     Dosage: TABS?1 DF = 25-50MG?21SEP07-31MAR08,193D?01APR08-31MAR09:15-50MG,01APR09 DECRE TO 12.5MG TO31MR10
     Route: 048
     Dates: start: 20070921
  3. PREDNISOLONE. [Suspect]
     Active Substance: PREDNISOLONE
     Indication: MYASTHENIA GRAVIS
     Dosage: TABS?1 DF = 25-50MG?21SEP07-31MAR08,193D?01APR08-31MAR09:15-50MG,01APR09 DECRE TO 12.5MG TO31MR10
     Route: 048
     Dates: start: 20070921
  4. STOCRIN CAPS 200 MG [Suspect]
     Active Substance: EFAVIRENZ
     Indication: HIV INFECTION
     Dosage: STOCRIN TABS 200MG
     Route: 048
     Dates: start: 20030124, end: 20100119

REACTIONS (2)
  - Diabetes mellitus [Not Recovered/Not Resolved]
  - Myasthenia gravis [Not Recovered/Not Resolved]

NARRATIVE: CASE EVENT DATE: 20070614
